FAERS Safety Report 8560738-1 (Version None)
Quarter: 2012Q3

REPORT INFORMATION
  Report Type: 
  Country: None (occurrence: None)
  Receive Date: 20120802
  Receipt Date: 20120730
  Transmission Date: 20120928
  Serious: Yes (Hospitalization, Other)
  Sender: FDA-Public Use
  Company Number: PHHO2012US011198

PATIENT
  Sex: Female
  Weight: 79.501 kg

DRUGS (10)
  1. VALSARTAN [Suspect]
     Indication: CARDIAC FAILURE CHRONIC
     Dosage: NO TREATMENT
     Route: 048
  2. POTASSIUM CHLORIDE [Concomitant]
     Indication: MEDICAL DIET
     Dosage: 20 MG, DAILY
     Route: 048
     Dates: start: 20100930, end: 20120727
  3. ENALAPRIL MALEATE [Suspect]
     Indication: CARDIAC FAILURE CHRONIC
     Dosage: NO TREATMENT
     Route: 048
  4. BLINDED NO TREATMENT RECEIVED [Suspect]
     Indication: CARDIAC FAILURE CHRONIC
     Dosage: NO TREATMENT
     Route: 048
  5. VALSARTAN [Suspect]
     Indication: CARDIAC FAILURE CHRONIC
     Dosage: UNK
     Route: 048
     Dates: start: 20120613, end: 20120727
  6. METOPROLOL TARTRATE [Concomitant]
     Indication: CARDIAC FAILURE
     Dosage: 200 MG, DAILY
     Route: 048
     Dates: start: 20100930, end: 20120727
  7. ALLOPURINOL [Suspect]
     Indication: GOUT
     Dosage: 100 MG, DAILY
     Dates: start: 20110719, end: 20120727
  8. MECLIZINE [Concomitant]
     Dosage: 25 MG, BID
     Route: 048
     Dates: start: 20120620, end: 20120727
  9. FUROSEMIDE [Suspect]
     Indication: CARDIAC FAILURE
     Dosage: 80 MG, BID
     Route: 048
     Dates: start: 20100930, end: 20120727
  10. DIGOXIN [Concomitant]
     Indication: CARDIAC FAILURE
     Dosage: 125 MG, DAILY
     Route: 048
     Dates: start: 20100529, end: 20120720

REACTIONS (1)
  - RENAL FAILURE ACUTE [None]
